FAERS Safety Report 18415363 (Version 2)
Quarter: 2020Q4

REPORT INFORMATION
  Report Type: Spontaneous
  Country: SE (occurrence: SE)
  Receive Date: 20201022
  Receipt Date: 20201116
  Transmission Date: 20210114
  Serious: Yes (Other)
  Sender: FDA-Public Use
  Company Number: SE-AMGEN-SWESP2020168800

PATIENT
  Age: 55 Year
  Sex: Male

DRUGS (5)
  1. METFORMIN ACTAVIS [Concomitant]
     Active Substance: METFORMIN HYDROCHLORIDE
     Dosage: 2 GRAM, QD
     Dates: start: 20170816
  2. ALFACALCIDOL [Concomitant]
     Active Substance: ALFACALCIDOL
     Dosage: UNK UNK, QD
     Dates: start: 20200821
  3. REPATHA [Suspect]
     Active Substance: EVOLOCUMAB
     Indication: LIPID METABOLISM DISORDER
     Dosage: 140 MILLIGRAM, Q2WK
     Route: 058
     Dates: start: 20200722, end: 20200923
  4. LOSARTAN ACTAVIS [Concomitant]
     Active Substance: LOSARTAN
     Dosage: 275 MILLIGRAM, QD
     Dates: start: 20170512
  5. SODIUM HYDROGEN CARBONATE [Concomitant]
     Active Substance: SODIUM BICARBONATE
     Dosage: 2 GRAM, QD
     Dates: start: 20180618

REACTIONS (1)
  - Deep vein thrombosis [Recovering/Resolving]

NARRATIVE: CASE EVENT DATE: 202009
